FAERS Safety Report 4875871-5 (Version None)
Quarter: 2006Q1

REPORT INFORMATION
  Report Type: 
  Country: None (occurrence: None)
  Receive Date: 20060109
  Receipt Date: 20051213
  Transmission Date: 20060701
  Serious: Yes (Other)
  Sender: FDA-Public Use
  Company Number: US-MERCK-0512USA02096

PATIENT
  Age: 41 Year
  Sex: Female
  Weight: 77 kg

DRUGS (5)
  1. VIOXX [Suspect]
     Indication: OSTEOARTHRITIS
     Route: 048
     Dates: start: 20020609, end: 20041001
  2. NEXIUM [Concomitant]
     Route: 065
  3. CELEXA [Concomitant]
     Route: 065
  4. ELAVIL [Concomitant]
     Route: 065
  5. NASONEX [Concomitant]
     Route: 065

REACTIONS (6)
  - ASTHMA [None]
  - CHEST PAIN [None]
  - DYSPNOEA [None]
  - MYOCARDIAL INFARCTION [None]
  - NEPHROLITHIASIS [None]
  - VENTRICULAR DYSFUNCTION [None]
